FAERS Safety Report 18947284 (Version 1)
Quarter: 2021Q1

REPORT INFORMATION
  Report Type: Spontaneous
  Country: SE (occurrence: SE)
  Receive Date: 20210226
  Receipt Date: 20210226
  Transmission Date: 20210420
  Serious: Yes (Other)
  Sender: FDA-Public Use
  Company Number: SE-GILEAD-2021-0518792

PATIENT
  Age: 93 Year
  Sex: Female

DRUGS (7)
  1. RINGER ACETAT [CALCIUM CHLORIDE;POTASSIUM CHLORIDE] [Concomitant]
     Dosage: UNK
     Dates: start: 20210202, end: 20210203
  2. KALEORID [Concomitant]
     Active Substance: POTASSIUM CHLORIDE
     Dates: start: 20210202
  3. ADDEX?KALIUM [Concomitant]
     Dates: start: 20210202, end: 20210203
  4. INNOHEP [Concomitant]
     Active Substance: TINZAPARIN SODIUM
     Dates: start: 20210131
  5. REMDESIVIR. [Suspect]
     Active Substance: REMDESIVIR
     Indication: COVID-19
     Dosage: 200 MG, QD
     Route: 042
     Dates: start: 20210202, end: 20210203
  6. ADDEX?MAGNESIUM [Concomitant]
     Active Substance: MAGNESIUM SULFATE
     Dates: start: 20210202, end: 20210203
  7. CEFOTAXIME [Concomitant]
     Active Substance: CEFOTAXIME SODIUM
     Dates: start: 20210131

REACTIONS (1)
  - Cheilitis [Not Recovered/Not Resolved]

NARRATIVE: CASE EVENT DATE: 20210203
